FAERS Safety Report 4833310-4 (Version None)
Quarter: 2005Q4

REPORT INFORMATION
  Report Type: 
  Country: None (occurrence: None)
  Receive Date: 20051117
  Receipt Date: 20051108
  Transmission Date: 20060501
  Serious: Yes (Other)
  Sender: FDA-Public Use
  Company Number: 2005-10-0898

PATIENT
  Age: 70 Year
  Sex: Male
  Weight: 74 kg

DRUGS (2)
  1. NEOCLARITYN        (DESLORATADINE) [Suspect]
     Indication: RHINITIS
     Dosage: 5MG ORAL
     Route: 048
     Dates: start: 20050915, end: 20050919
  2. AQUEOUS CREAM [Concomitant]

REACTIONS (5)
  - DIZZINESS [None]
  - FALL [None]
  - GAIT DISTURBANCE [None]
  - SYNCOPE [None]
  - VENTRICULAR EXTRASYSTOLES [None]
